FAERS Safety Report 7503213-5 (Version None)
Quarter: 2011Q2

REPORT INFORMATION
  Report Type: 
  Country: None (occurrence: None)
  Receive Date: 20110524
  Receipt Date: 20110524
  Transmission Date: 20111010
  Serious: Yes (Life-Threatening)
  Sender: FDA-Public Use
  Company Number: None

PATIENT
  Age: 1 Day
  Sex: Female
  Weight: 0.65 kg

DRUGS (1)
  1. TPN [Suspect]

REACTIONS (5)
  - HYPOTENSION [None]
  - PULMONARY HAEMORRHAGE [None]
  - BLOOD GLUCOSE INCREASED [None]
  - METABOLIC ACIDOSIS [None]
  - ELECTROLYTE IMBALANCE [None]
